FAERS Safety Report 15643729 (Version 2)
Quarter: 2018Q4

REPORT INFORMATION
  Report Type: Other
  Country: US (occurrence: US)
  Receive Date: 20181121
  Receipt Date: 20181211
  Transmission Date: 20190205
  Serious: Yes (Other)
  Sender: FDA-Public Use
  Company Number: US-ACORDA-ACO_155413_2018

PATIENT
  Sex: Male

DRUGS (2)
  1. TYSABRI [Suspect]
     Active Substance: NATALIZUMAB
     Indication: MULTIPLE SCLEROSIS
     Dosage: 300 MILLIGRAM, INFUSED OVER 1 HOUR ONCE EVERY 4 WEEKS
     Route: 042
  2. AMPYRA [Suspect]
     Active Substance: DALFAMPRIDINE
     Indication: PRODUCT USED FOR UNKNOWN INDICATION
     Dosage: UNK
     Route: 065

REACTIONS (10)
  - Drug hypersensitivity [Unknown]
  - Back pain [Unknown]
  - Chronic kidney disease [Unknown]
  - Spondylolisthesis [Unknown]
  - Occult blood positive [Unknown]
  - Dermatitis contact [Unknown]
  - Multiple sclerosis [Unknown]
  - Hemiplegia [Unknown]
  - Arthralgia [Unknown]
  - Gait disturbance [Unknown]
